FAERS Safety Report 10101354 (Version 2)
Quarter: 2014Q2

REPORT INFORMATION
  Report Type: Spontaneous
  Country: US (occurrence: US)
  Receive Date: 20140424
  Receipt Date: 20140630
  Transmission Date: 20141212
  Serious: No
  Sender: FDA-Public Use
  Company Number: US-PFIZER INC-2014113286

PATIENT
  Age: 35 Year
  Sex: Female
  Weight: 53.5 kg

DRUGS (5)
  1. LYRICA [Suspect]
     Indication: DIABETIC NEUROPATHY
     Dosage: 150 MG, THREE TIMES A DAY
     Route: 048
     Dates: start: 201310, end: 201405
  2. HUMULIN 70/30 [Concomitant]
     Indication: DIABETES MELLITUS
     Dosage: UNK
  3. LEVEMIR [Concomitant]
     Indication: DIABETES MELLITUS
     Dosage: 21 UNITS, 2X/DAY (21 UNITS IN THE MORNING AND 21 UNITS AT NIGHT)
  4. LANTUS [Concomitant]
     Dosage: UNK
     Dates: start: 201207
  5. NOVOLIN 70/30 [Concomitant]
     Dosage: HUMAN INSULIN ISOPHANE 70/ HUMAN INSULIN REGULAR 30
     Dates: start: 201207

REACTIONS (1)
  - Dizziness [Recovered/Resolved]
